FAERS Safety Report 9405295 (Version 1)
Quarter: 2013Q3

REPORT INFORMATION
  Report Type: Spontaneous
  Country: NO (occurrence: NO)
  Receive Date: 20130717
  Receipt Date: 20130717
  Transmission Date: 20140515
  Serious: Yes (Life-Threatening, Hospitalization)
  Sender: FDA-Public Use
  Company Number: NO-ABBOTT-13P-122-1121113-00

PATIENT
  Age: 62 Year
  Sex: Male

DRUGS (2)
  1. ENANTONE [Suspect]
     Indication: PROSTATE CANCER
     Route: 058
     Dates: start: 20120515
  2. BICALUTAMIDE [Concomitant]
     Indication: ANTIANDROGEN THERAPY
     Route: 048
     Dates: start: 20120510

REACTIONS (2)
  - Pituitary haemorrhage [Recovered/Resolved with Sequelae]
  - Hypopituitarism [None]
